FAERS Safety Report 15637754 (Version 1)
Quarter: 2018Q4

REPORT INFORMATION
  Report Type: Spontaneous
  Country: US (occurrence: US)
  Receive Date: 20181120
  Receipt Date: 20181120
  Transmission Date: 20190205
  Serious: No
  Sender: FDA-Public Use
  Company Number: US-JNJFOC-20180516747

PATIENT
  Age: 76 Year
  Sex: Male

DRUGS (6)
  1. CARTIA [Concomitant]
  2. XARELTO [Concomitant]
     Active Substance: RIVAROXABAN
  3. IMBRUVICA [Suspect]
     Active Substance: IBRUTINIB
     Indication: CHRONIC LYMPHOCYTIC LEUKAEMIA
     Route: 048
     Dates: start: 20180330, end: 201804
  4. TAMSULOSIN [Concomitant]
     Active Substance: TAMSULOSIN
  5. HYDROCODONE [Concomitant]
     Active Substance: HYDROCODONE
  6. HYDROCODONE/PARACETAMOL [Concomitant]
     Active Substance: ACETAMINOPHEN\HYDROCODONE BITARTRATE
     Route: 065

REACTIONS (2)
  - Adverse reaction [Unknown]
  - Adverse drug reaction [Unknown]

NARRATIVE: CASE EVENT DATE: 201804
